FAERS Safety Report 16185443 (Version 13)
Quarter: 2019Q3

REPORT INFORMATION
  Report Type: Report from Study
  Country: US (occurrence: US)
  Receive Date: 20190411
  Receipt Date: 20190919
  Transmission Date: 20191004
  Serious: Yes (Other)
  Sender: FDA-Public Use
  Company Number: US-JNJFOC-20190234725

PATIENT
  Age: 89 Year
  Sex: Male

DRUGS (13)
  1. ONDANSETRON HCL [Concomitant]
     Active Substance: ONDANSETRON HYDROCHLORIDE
  2. SULFAMETHOXAZOLE [Concomitant]
     Active Substance: SULFAMETHOXAZOLE
     Dosage: UNK (EVERY MONDAY/WEDNESDAY/FRIDAY TWO TIMES A DAY)
  3. IMBRUVICA [Suspect]
     Active Substance: IBRUTINIB
     Route: 048
     Dates: start: 201903
  4. ALLOPURINOL. [Concomitant]
     Active Substance: ALLOPURINOL
  5. IMBRUVICA [Suspect]
     Active Substance: IBRUTINIB
     Route: 048
     Dates: start: 20190305
  6. IMBRUVICA [Suspect]
     Active Substance: IBRUTINIB
     Route: 048
  7. FLOMAX [Concomitant]
     Active Substance: TAMSULOSIN HYDROCHLORIDE
     Dosage: AT NIGHT
  8. LIPITOR [Concomitant]
     Active Substance: ATORVASTATIN CALCIUM
     Dosage: EVERY NIGHT.
  9. FUROSEMIDE. [Concomitant]
     Active Substance: FUROSEMIDE
     Dosage: 300 MG, UNK
  10. LASIX [Concomitant]
     Active Substance: FUROSEMIDE
  11. IMBRUVICA [Suspect]
     Active Substance: IBRUTINIB
     Indication: CHRONIC LYMPHOCYTIC LEUKAEMIA
     Route: 048
     Dates: start: 201901
  12. IMBRUVICA [Suspect]
     Active Substance: IBRUTINIB
     Route: 048
     Dates: start: 20190215
  13. IMBRUVICA [Suspect]
     Active Substance: IBRUTINIB
     Route: 048
     Dates: start: 20190207

REACTIONS (52)
  - Neutrophil count abnormal [Not Recovered/Not Resolved]
  - Protein total abnormal [Not Recovered/Not Resolved]
  - Nail growth abnormal [Not Recovered/Not Resolved]
  - Hypoaesthesia [Recovering/Resolving]
  - Fatigue [Not Recovered/Not Resolved]
  - Productive cough [Not Recovered/Not Resolved]
  - Decreased appetite [Not Recovered/Not Resolved]
  - Blood pressure increased [Not Recovered/Not Resolved]
  - Headache [Not Recovered/Not Resolved]
  - Insomnia [Not Recovered/Not Resolved]
  - Precancerous skin lesion [Recovered/Resolved]
  - Hypoacusis [Not Recovered/Not Resolved]
  - Dysgraphia [Not Recovered/Not Resolved]
  - High density lipoprotein abnormal [Not Recovered/Not Resolved]
  - Constipation [Not Recovered/Not Resolved]
  - Neuropathy peripheral [Not Recovered/Not Resolved]
  - Haemorrhagic diathesis [Unknown]
  - Balance disorder [Not Recovered/Not Resolved]
  - Monocyte count increased [Not Recovered/Not Resolved]
  - Dizziness [Not Recovered/Not Resolved]
  - Prostatomegaly [Not Recovered/Not Resolved]
  - Muscular weakness [Not Recovered/Not Resolved]
  - Nocturia [Not Recovered/Not Resolved]
  - Gait disturbance [Recovered/Resolved]
  - White blood cell count abnormal [Recovered/Resolved]
  - Onychoclasis [Not Recovered/Not Resolved]
  - Urinary incontinence [Not Recovered/Not Resolved]
  - Contusion [Not Recovered/Not Resolved]
  - Anxiety [Not Recovered/Not Resolved]
  - Peripheral swelling [Not Recovered/Not Resolved]
  - Chills [Unknown]
  - Rhinorrhoea [Not Recovered/Not Resolved]
  - Weight decreased [Not Recovered/Not Resolved]
  - Memory impairment [Not Recovered/Not Resolved]
  - Haematocrit abnormal [Not Recovered/Not Resolved]
  - Globulin abnormal [Not Recovered/Not Resolved]
  - Asthenia [Recovering/Resolving]
  - Blood viscosity decreased [Not Recovered/Not Resolved]
  - Feeling abnormal [Not Recovered/Not Resolved]
  - Product dose omission [Unknown]
  - Alopecia [Recovered/Resolved]
  - Micturition urgency [Not Recovered/Not Resolved]
  - Fluid retention [Not Recovered/Not Resolved]
  - Skin mass [Recovered/Resolved]
  - Red blood cell count abnormal [Not Recovered/Not Resolved]
  - Haemoglobin abnormal [Not Recovered/Not Resolved]
  - Anal sphincter atony [Not Recovered/Not Resolved]
  - Urinary retention [Not Recovered/Not Resolved]
  - Head discomfort [Not Recovered/Not Resolved]
  - Pain in extremity [Recovered/Resolved]
  - Muscle spasms [Not Recovered/Not Resolved]
  - Fall [Unknown]

NARRATIVE: CASE EVENT DATE: 201903
